FAERS Safety Report 5295487-9 (Version None)
Quarter: 2007Q2

REPORT INFORMATION
  Report Type: 
  Country: None (occurrence: None)
  Receive Date: 20070406
  Receipt Date: 20070330
  Transmission Date: 20071010
  Serious: Yes (Other)
  Sender: FDA-Public Use
  Company Number: 239279

PATIENT
  Age: 10 Year
  Sex: Female

DRUGS (1)
  1. XOLAIR [Suspect]
     Indication: ASTHMA
     Dosage: 375 MG,Q2W, SUBCUTANEOUS
     Dates: start: 20061103

REACTIONS (1)
  - ANAPHYLACTIC REACTION [None]
